FAERS Safety Report 12675424 (Version 1)
Quarter: 2016Q3

REPORT INFORMATION
  Report Type: Spontaneous
  Country: US (occurrence: US)
  Receive Date: 20160823
  Receipt Date: 20160823
  Transmission Date: 20161109
  Serious: No
  Sender: FDA-Public Use
  Company Number: US-BEH-2016072594

PATIENT
  Age: 59 Year
  Sex: Female
  Weight: 81.63 kg

DRUGS (1)
  1. HIZENTRA [Suspect]
     Active Substance: HUMAN IMMUNOGLOBULIN G
     Indication: SELECTIVE IGG SUBCLASS DEFICIENCY
     Dosage: 20 G, QOW
     Route: 058
     Dates: start: 20160521, end: 20160609

REACTIONS (3)
  - Swelling [Unknown]
  - Dysphonia [Unknown]
  - Pruritus generalised [Unknown]
